FAERS Safety Report 6336119-8 (Version None)
Quarter: 2009Q3

REPORT INFORMATION
  Report Type: 
  Country: None (occurrence: None)
  Receive Date: 20090901
  Receipt Date: 20090824
  Transmission Date: 20100115
  Serious: Yes (Other)
  Sender: FDA-Public Use
  Company Number: JP-ASTRAZENECA-2009SE06536

PATIENT
  Sex: Male

DRUGS (1)
  1. UNSPECIFIED DRUG [Suspect]
     Indication: LUNG ADENOCARCINOMA
     Route: 048

REACTIONS (1)
  - HEPATIC FUNCTION ABNORMAL [None]
